FAERS Safety Report 8958624 (Version 1)
Quarter: 2012Q4

REPORT INFORMATION
  Report Type: Spontaneous
  Country: US (occurrence: None)
  Receive Date: 20121206
  Receipt Date: 20121206
  Transmission Date: 20130627
  Serious: Yes (Life-Threatening)
  Sender: FDA-Public Use
  Company Number: None

PATIENT
  Age: 59 Year
  Sex: Female
  Weight: 54.43 kg

DRUGS (1)
  1. NITROFURANTOIN [Suspect]
     Indication: URINARY TRACT INFECTION
     Dosage: 1 CAP BY MOUTH EVERY 6 HRS
     Route: 048
     Dates: start: 20121130, end: 20121201

REACTIONS (25)
  - Lung disorder [None]
  - Chest pain [None]
  - Dyspnoea [None]
  - Cough [None]
  - Nausea [None]
  - Vomiting [None]
  - Chromaturia [None]
  - Ocular icterus [None]
  - Yellow skin [None]
  - Fatigue [None]
  - Palpitations [None]
  - Heart rate increased [None]
  - Hypoaesthesia [None]
  - Paraesthesia [None]
  - Chills [None]
  - Muscular weakness [None]
  - Dizziness [None]
  - Joint swelling [None]
  - Joint swelling [None]
  - Joint swelling [None]
  - Joint swelling [None]
  - Photosensitivity reaction [None]
  - Headache [None]
  - Dyspnoea [None]
  - Hypersensitivity [None]
